FAERS Safety Report 6694452-4 (Version None)
Quarter: 2010Q2

REPORT INFORMATION
  Report Type: 
  Country: None (occurrence: None)
  Receive Date: 20100420
  Receipt Date: 20100408
  Transmission Date: 20101027
  Serious: Yes (Other)
  Sender: FDA-Public Use
  Company Number: 2010AL001195

PATIENT
  Age: 79 Year
  Sex: Male

DRUGS (8)
  1. TEMAZEPAM [Suspect]
     Indication: INSOMNIA
     Dosage: UNKNOWN; PO
     Route: 048
     Dates: start: 20091230, end: 20100101
  2. CLOZAPINE [Concomitant]
  3. DONEPEZIL HCL [Concomitant]
  4. LAMOTRIGNE [Concomitant]
  5. LISINOPRIL [Concomitant]
  6. ATENOLOL [Concomitant]
  7. CLOPIDOGREL [Concomitant]
  8. ARICEPT [Concomitant]

REACTIONS (3)
  - HYPOXIA [None]
  - SOMNOLENCE [None]
  - UNRESPONSIVE TO STIMULI [None]
